FAERS Safety Report 21868692 (Version 2)
Quarter: 2023Q1

REPORT INFORMATION
  Report Type: Spontaneous
  Country: US (occurrence: US)
  Receive Date: 20230117
  Receipt Date: 20230119
  Transmission Date: 20230417
  Serious: No
  Sender: FDA-Public Use
  Company Number: US-AMGEN-USASP2023006396

PATIENT
  Age: 114 Year
  Sex: Male
  Weight: 95.238 kg

DRUGS (2)
  1. PROCRIT [Suspect]
     Active Substance: ERYTHROPOIETIN
     Indication: Plasma cell myeloma
     Dosage: 40000 UNITS/ML
     Route: 065
     Dates: start: 202210
  2. PROCRIT [Suspect]
     Active Substance: ERYTHROPOIETIN
     Indication: Renal impairment

REACTIONS (1)
  - Accidental exposure to product [Unknown]

NARRATIVE: CASE EVENT DATE: 20221001
